FAERS Safety Report 5419594-2 (Version None)
Quarter: 2007Q3

REPORT INFORMATION
  Report Type: 
  Country: None (occurrence: None)
  Receive Date: 20070820
  Receipt Date: 20070810
  Transmission Date: 20080115
  Serious: Yes (Hospitalization)
  Sender: FDA-Public Use
  Company Number: CH-BAYER-200714651GDS

PATIENT
  Age: 26 Year
  Sex: Female

DRUGS (3)
  1. METOCLOPRAMIDE [Interacting]
     Indication: NAUSEA
     Dosage: TOTAL DAILY DOSE: 30 MG
     Route: 048
     Dates: start: 20070531
  2. CIPROFLOXACIN [Suspect]
     Indication: DIARRHOEA
     Route: 048
     Dates: start: 20070531
  3. LOPERAMIDE HCL [Concomitant]
     Indication: DIARRHOEA
     Route: 048
     Dates: start: 20070531

REACTIONS (2)
  - DYSKINESIA [None]
  - DYSTONIA [None]
